FAERS Safety Report 6993701-2 (Version None)
Quarter: 2010Q3

REPORT INFORMATION
  Report Type: 
  Country: None (occurrence: None)
  Receive Date: 20100917
  Receipt Date: 20100129
  Transmission Date: 20110219
  Serious: No
  Sender: FDA-Public Use
  Company Number: US-ASTRAZENECA-2010SE04471

PATIENT
  Age: 611 Month
  Sex: Male
  Weight: 88.5 kg

DRUGS (7)
  1. SEROQUEL XR [Suspect]
     Indication: DEPRESSION
     Route: 048
     Dates: start: 20080101, end: 20100101
  2. SEROQUEL XR [Suspect]
     Indication: ANXIETY
     Route: 048
     Dates: start: 20080101, end: 20100101
  3. HYDROCODONE [Concomitant]
  4. LOVASTATIN [Concomitant]
  5. CITALOPRAM HYDROBROMIDE [Concomitant]
  6. ALPRAZOLAM [Concomitant]
     Indication: SEDATION
  7. CIPRO [Concomitant]
     Indication: RESPIRATORY TRACT INFECTION

REACTIONS (3)
  - AGITATION [None]
  - ANGER [None]
  - INSOMNIA [None]
